FAERS Safety Report 7130514-5 (Version None)
Quarter: 2010Q4

REPORT INFORMATION
  Report Type: 
  Country: None (occurrence: None)
  Receive Date: 20101201
  Receipt Date: 20101119
  Transmission Date: 20110411
  Serious: Yes (Hospitalization)
  Sender: FDA-Public Use
  Company Number: DE-JNJFOC-20101200076

PATIENT
  Age: 77 Year
  Sex: Male

DRUGS (2)
  1. PALEXIA RETARD [Suspect]
     Indication: PAIN
     Route: 048
  2. TRAMADOL HCL [Concomitant]

REACTIONS (1)
  - RENAL FAILURE [None]
